FAERS Safety Report 21917591 (Version 3)
Quarter: 2023Q1

REPORT INFORMATION
  Report Type: Spontaneous
  Country: TN (occurrence: TN)
  Receive Date: 20230127
  Receipt Date: 20230321
  Transmission Date: 20230417
  Serious: Yes (Hospitalization)
  Sender: FDA-Public Use
  Company Number: TN-NOVOPROD-1014294

PATIENT
  Age: 10 Year
  Sex: Female
  Weight: 35 kg

DRUGS (4)
  1. NOVORAPID [Suspect]
     Active Substance: INSULIN ASPART
     Indication: Type 1 diabetes mellitus
     Dosage: UNK
     Route: 058
     Dates: start: 202001
  2. NOVORAPID [Suspect]
     Active Substance: INSULIN ASPART
     Dosage: UNK (BASAL SCHEMA BOLUS (3 BOLUS))
     Route: 058
     Dates: end: 202301
  3. LANTUS [Concomitant]
     Active Substance: INSULIN GLARGINE
     Indication: Product used for unknown indication
     Dosage: UNK
  4. TRIPTORELIN [Concomitant]
     Active Substance: TRIPTORELIN
     Indication: Precocious puberty
     Dosage: 1 AMPOULE/MONTH

REACTIONS (3)
  - Diabetic ketosis [Recovered/Resolved]
  - Diabetes mellitus inadequate control [Unknown]
  - Influenza [Unknown]

NARRATIVE: CASE EVENT DATE: 20221201
